FAERS Safety Report 5777530-3 (Version None)
Quarter: 2008Q2

REPORT INFORMATION
  Report Type: 
  Country: None (occurrence: None)
  Receive Date: 20080618
  Receipt Date: 20080610
  Transmission Date: 20081010
  Serious: Yes (Death, Hospitalization)
  Sender: FDA-Public Use
  Company Number: JP-AMGEN-US285061

PATIENT
  Sex: Female
  Weight: 39 kg

DRUGS (34)
  1. ENBREL [Suspect]
     Indication: RHEUMATOID ARTHRITIS
     Route: 058
     Dates: start: 20060726, end: 20080520
  2. ADENOSINE [Concomitant]
  3. ZANTAC [Concomitant]
  4. LOXONIN [Concomitant]
  5. METOLATE [Concomitant]
  6. FOLIAMIN [Concomitant]
  7. PROMAC [Concomitant]
  8. PROGRAF [Concomitant]
  9. GASLON [Concomitant]
  10. FLUCAM [Concomitant]
  11. LANSOPRAZOLE [Concomitant]
  12. PL [Concomitant]
  13. CLARITHROMYCIN [Concomitant]
  14. MUCOSOLVAN [Concomitant]
  15. BREDININ [Concomitant]
  16. GANATON [Concomitant]
  17. BERIZYM [Concomitant]
  18. ALLOPURINOL [Concomitant]
  19. KETOPROFEN [Concomitant]
  20. VOLTAREN [Concomitant]
  21. MILTAX [Concomitant]
  22. ISODINE [Concomitant]
  23. XYLOCAINE [Concomitant]
  24. INTEBAN [Concomitant]
  25. NEUROVITAN [Concomitant]
  26. GRANDAXIN [Concomitant]
  27. CYANOCOBALAMIN [Concomitant]
  28. COMELIAN [Concomitant]
  29. MAGNESIUM OXIDE [Concomitant]
  30. FUNGIZONE [Concomitant]
  31. AVELOX [Concomitant]
  32. PREDNISOLONE [Concomitant]
  33. HOMEOPATHIC PREPARATION [Concomitant]
  34. LANOCONAZOLE [Concomitant]

REACTIONS (3)
  - DIZZINESS [None]
  - JOINT DISLOCATION [None]
  - VERTEBRAL ARTERY OCCLUSION [None]
